FAERS Safety Report 4773539-7 (Version None)
Quarter: 2005Q3

REPORT INFORMATION
  Report Type: 
  Country: None (occurrence: None)
  Receive Date: 20050920
  Receipt Date: 20041006
  Transmission Date: 20060218
  Serious: No
  Sender: FDA-Public Use
  Company Number: US-BRISTOL-MYERS SQUIBB COMPANY-12724233

PATIENT
  Sex: Female

DRUGS (1)
  1. BUSPAR [Suspect]
     Dosage: DOSE INCREASED FROM 10MG TO 20MG

REACTIONS (2)
  - NAUSEA [None]
  - NERVOUSNESS [None]
